FAERS Safety Report 17584965 (Version 1)
Quarter: 2020Q1

REPORT INFORMATION
  Report Type: Spontaneous
  Country: US (occurrence: US)
  Receive Date: 20200324
  Receipt Date: 20200324
  Transmission Date: 20200409
  Serious: Yes (Hospitalization)
  Sender: FDA-Public Use
  Company Number: None

PATIENT
  Age: 71 Year
  Sex: Male
  Weight: 70.76 kg

DRUGS (2)
  1. SULFAMETHOXAZOLE/TRIMETHOPRIM (SULFAMETHOXAZOLE 800MG/TRIMETHOPRIM 160MG TAB) [Suspect]
     Active Substance: SULFAMETHOXAZOLE\TRIMETHOPRIM
     Indication: BACTERIAL INFECTION
     Route: 048
     Dates: start: 20190828, end: 20190904
  2. SULFAMETHOXAZOLE/TRIMETHOPRIM (SULFAMETHOXAZOLE 800MG/TRIMETHOPRIM 160MG TAB) [Suspect]
     Active Substance: SULFAMETHOXAZOLE\TRIMETHOPRIM
     Indication: SKIN ULCER
     Route: 048
     Dates: start: 20190828, end: 20190904

REACTIONS (1)
  - Acute kidney injury [None]

NARRATIVE: CASE EVENT DATE: 20190904
